FAERS Safety Report 8888266 (Version 6)
Quarter: 2014Q1

REPORT INFORMATION
  Report Type: Spontaneous
  Country: US (occurrence: US)
  Receive Date: 20121106
  Receipt Date: 20140306
  Transmission Date: 20141002
  Serious: Yes (Hospitalization, Other)
  Sender: FDA-Public Use
  Company Number: US-PFIZER INC-2012274545

PATIENT
  Age: 62 Year
  Sex: Female
  Weight: 68.03 kg

DRUGS (20)
  1. ENBREL [Suspect]
     Indication: RHEUMATOID ARTHRITIS
     Dosage: UNK
  2. LYRICA [Suspect]
     Indication: NEURALGIA
     Dosage: 50 MG, 2X/DAY
     Route: 048
  3. LYRICA [Suspect]
     Dosage: 100 MG, 2X/DAY
     Route: 048
  4. LYRICA [Suspect]
     Dosage: 150 MG, 2X/DAY
     Route: 048
  5. LYRICA [Suspect]
     Dosage: 200 MG, 2X/DAY
     Route: 048
  6. LYRICA [Suspect]
     Dosage: 250 MG, 2X/DAY
     Route: 048
  7. LYRICA [Suspect]
     Dosage: 300 MG, 2X/DAY
     Route: 048
  8. LYRICA [Suspect]
     Dosage: 2X 50 MG MORNING AND 3X 50 MG NIGHT
  9. LYRICA [Suspect]
     Dosage: 300 MG, 2X/DAY
  10. LYRICA [Suspect]
     Dosage: 50 MG, UNK
  11. LYRICA [Suspect]
     Dosage: UNK
  12. DICLOFENAC [Suspect]
     Indication: OSTEOARTHRITIS
     Dosage: 50 MG, 2X/DAY
  13. DICLOFENAC SODIUM [Concomitant]
     Dosage: UNK
  14. LEVOTHYROXINE [Concomitant]
     Indication: HYPOTHYROIDISM
     Dosage: UNK
  15. LEVOTHYROXINE [Concomitant]
     Dosage: 0.88 MG, UNK
  16. REMICADE [Concomitant]
     Indication: RHEUMATOID ARTHRITIS
     Dosage: UNK, EVERY SIX WEEKS
     Route: 042
  17. NASONEX [Concomitant]
     Dosage: UNK
  18. FLUTICASONE PROPIONATE [Concomitant]
     Dosage: UNK
  19. TEMAZEPAM [Concomitant]
     Indication: SLEEP DISORDER
     Dosage: UNK
  20. FLUTICASONE [Concomitant]
     Dosage: UNK

REACTIONS (13)
  - Spinal column stenosis [Unknown]
  - Arthropathy [Unknown]
  - Hypothyroidism [Unknown]
  - Drug dependence [Unknown]
  - Spinal disorder [Unknown]
  - Dizziness [Unknown]
  - Pain in extremity [Unknown]
  - Insomnia [Unknown]
  - Drug ineffective [Unknown]
  - Neuralgia [Not Recovered/Not Resolved]
  - Joint injury [Unknown]
  - Osteoarthritis [Unknown]
  - Feeling abnormal [Unknown]
